FAERS Safety Report 7006078-3 (Version None)
Quarter: 2010Q3

REPORT INFORMATION
  Report Type: 
  Country: None (occurrence: None)
  Receive Date: 20100921
  Receipt Date: 20100914
  Transmission Date: 20110219
  Serious: Yes (Hospitalization)
  Sender: FDA-Public Use
  Company Number: US-PFIZER INC-2010116739

PATIENT
  Sex: Female

DRUGS (1)
  1. SUTENT [Suspect]
     Indication: CONNECTIVE TISSUE NEOPLASM
     Dosage: 50 MG, UNK
     Route: 048

REACTIONS (1)
  - CEREBROVASCULAR ACCIDENT [None]
